FAERS Safety Report 4712333-X (Version None)
Quarter: 2005Q3

REPORT INFORMATION
  Report Type: 
  Country: None (occurrence: None)
  Receive Date: 20050711
  Receipt Date: 20050629
  Transmission Date: 20060218
  Serious: Yes (Hospitalization)
  Sender: FDA-Public Use
  Company Number: 2005076261

PATIENT
  Age: 54 Year
  Sex: Female

DRUGS (3)
  1. LIPITOR [Suspect]
     Indication: ILL-DEFINED DISORDER
  2. AVELOX [Suspect]
     Indication: SINUSITIS
     Dosage: 400 MG (1 IN 1 D), ORAL
     Route: 048
  3. LEXAPRO [Concomitant]

REACTIONS (2)
  - NEPHRITIS INTERSTITIAL [None]
  - RENAL FAILURE ACUTE [None]
